FAERS Safety Report 9243599 (Version 4)
Quarter: 2013Q2

REPORT INFORMATION
  Report Type: Report from Study
  Country: AT (occurrence: AT)
  Receive Date: 20130422
  Receipt Date: 20130628
  Transmission Date: 20140414
  Serious: Yes (Hospitalization)
  Sender: FDA-Public Use
  Company Number: AT-BIOGENIDEC-2013BI026208

PATIENT
  Age: 42 Year
  Sex: Male
  Weight: 83 kg

DRUGS (5)
  1. BG00012 [Suspect]
     Indication: MULTIPLE SCLEROSIS
     Dates: start: 20100910
  2. NEURONTIN [Concomitant]
     Route: 048
  3. ALNA [Concomitant]
     Route: 048
  4. AGLANDIN [Concomitant]
     Indication: MICTURITION URGENCY
     Route: 048
     Dates: start: 200711
  5. MIRTABENE [Concomitant]
     Indication: SLEEP DISORDER
     Route: 048
     Dates: start: 2013

REACTIONS (2)
  - Major depression [Recovered/Resolved with Sequelae]
  - Multiple sclerosis relapse [Recovered/Resolved with Sequelae]
